FAERS Safety Report 4277215-9 (Version None)
Quarter: 2004Q1

REPORT INFORMATION
  Report Type: 
  Country: None (occurrence: None)
  Receive Date: 20040120
  Receipt Date: 20040107
  Transmission Date: 20041129
  Serious: Yes (Other)
  Sender: FDA-Public Use
  Company Number: 200410047EU

PATIENT
  Age: 51 Year
  Sex: Female

DRUGS (6)
  1. RIFAMPICIN [Suspect]
     Indication: TUBERCULOSIS
     Dosage: 45 MG/DAY
     Dates: start: 20010113, end: 20010213
  2. ISONIAZID [Concomitant]
  3. ETHAMBUTOL HCL [Concomitant]
  4. PYRAZINAMIDE [Concomitant]
  5. ALLOPURINOL [Concomitant]
  6. TEPRENONE [Concomitant]

REACTIONS (4)
  - ACIDOSIS [None]
  - AGRANULOCYTOSIS [None]
  - EOSINOPHILIA [None]
  - HYPERSENSITIVITY [None]
